FAERS Safety Report 6633205-X (Version None)
Quarter: 2010Q1

REPORT INFORMATION
  Report Type: 
  Country: None (occurrence: None)
  Receive Date: 20100312
  Receipt Date: 20100309
  Transmission Date: 20100710
  Serious: Yes (Death)
  Sender: FDA-Public Use
  Company Number: PHEH2010US01927

PATIENT
  Sex: Female

DRUGS (2)
  1. RECLAST [Suspect]
     Indication: SENILE OSTEOPOROSIS
     Dosage: 5 MG ONCE YEARLY
     Route: 042
     Dates: start: 20071112, end: 20071112
  2. RECLAST [Suspect]
     Dosage: 5 MG ONCE YEARLY
     Route: 042
     Dates: start: 20090225, end: 20090225

REACTIONS (1)
  - DEATH [None]
